FAERS Safety Report 24435207 (Version 1)
Quarter: 2024Q4

REPORT INFORMATION
  Report Type: Other
  Country: GB (occurrence: GB)
  Receive Date: 20241015
  Receipt Date: 20241015
  Transmission Date: 20250114
  Serious: Yes (Other)
  Sender: STRIDES
  Company Number: None

PATIENT
  Age: 72 Year
  Sex: Female
  Weight: 140 kg

DRUGS (3)
  1. GABAPENTIN [Suspect]
     Active Substance: GABAPENTIN
     Indication: Adverse drug reaction
     Dosage: 300 MILLIGRAM, TID (300 MG 3X DAILY, CAPSULE SOFT)
     Route: 065
     Dates: start: 20240911
  2. MIDODRINE [Concomitant]
     Active Substance: MIDODRINE
     Indication: Adverse drug reaction
     Dosage: UNK
     Route: 065
     Dates: start: 20200101
  3. LIPITOR [Concomitant]
     Active Substance: ATORVASTATIN CALCIUM
     Indication: Blood cholesterol increased
     Dosage: UNK
     Route: 065
     Dates: start: 20180101

REACTIONS (2)
  - Hypoaesthesia [Not Recovered/Not Resolved]
  - Sensory loss [Not Recovered/Not Resolved]

NARRATIVE: CASE EVENT DATE: 20241001
